FAERS Safety Report 15482585 (Version 2)
Quarter: 2018Q4

REPORT INFORMATION
  Report Type: Spontaneous
  Country: TW (occurrence: TW)
  Receive Date: 20181010
  Receipt Date: 20181011
  Transmission Date: 20190205
  Serious: Yes (Death, Hospitalization)
  Sender: FDA-Public Use
  Company Number: TW-PFIZER INC-2018400383

PATIENT
  Age: 66 Year
  Sex: Female

DRUGS (10)
  1. SALAZINE [Concomitant]
     Active Substance: SULFASALAZINE
     Dosage: 1 DF, BID
  2. CELEBREX [Concomitant]
     Active Substance: CELECOXIB
     Dosage: 1 DF, BID
  3. XELJANZ [Suspect]
     Active Substance: TOFACITINIB CITRATE
     Indication: RHEUMATOID ARTHRITIS
     Dosage: 5 MG, BID
     Route: 048
     Dates: start: 20170512, end: 20180923
  4. MTX [Concomitant]
     Active Substance: METHOTREXATE SODIUM
     Dosage: 10 MG, WEEKLY
  5. WEICHILIN [Concomitant]
     Dosage: 1 DF, BID
  6. PLAQUENIL [Concomitant]
     Active Substance: HYDROXYCHLOROQUINE SULFATE
     Dosage: 1 DF, BID
  7. ACTEIN [Concomitant]
     Dosage: 200MG/3G PER PACKAGE, Q12H
     Route: 048
  8. PREDNISOLONE. [Concomitant]
     Active Substance: PREDNISOLONE
     Dosage: 1 DF, 1X/DAY
  9. SERETIDE 250 [Concomitant]
     Dosage: 2 BREATH Q12H
     Route: 055
  10. TECOLIN [Concomitant]
     Dosage: 50MG/100MG 1 PILL Q12H
     Route: 048

REACTIONS (3)
  - Pneumothorax [Unknown]
  - Death [Fatal]
  - Pneumonia [Unknown]

NARRATIVE: CASE EVENT DATE: 2018
